FAERS Safety Report 9239161 (Version 1)
Quarter: 2013Q2

REPORT INFORMATION
  Report Type: Spontaneous
  Country: FR (occurrence: FR)
  Receive Date: 20130418
  Receipt Date: 20130418
  Transmission Date: 20140414
  Serious: Yes (Other)
  Sender: FDA-Public Use
  Company Number: FR-ELI_LILLY_AND_COMPANY-FR201304002496

PATIENT
  Age: 66 Year
  Sex: Female

DRUGS (7)
  1. PROZAC [Suspect]
     Indication: DEPRESSION
     Dosage: 20 MG, QD
     Route: 048
     Dates: start: 2010, end: 201102
  2. PROZAC [Suspect]
     Dosage: 40 MG, QD
     Route: 048
     Dates: start: 201102, end: 201102
  3. PROZAC [Suspect]
     Dosage: 20 MG, QD
     Route: 048
     Dates: start: 201102, end: 20130405
  4. NORSET [Concomitant]
     Indication: DEPRESSION
     Dosage: UNK
     Dates: end: 20130405
  5. TRANXENE [Concomitant]
  6. IMOVANE [Concomitant]
  7. URSOLVAN [Concomitant]

REACTIONS (5)
  - Lung disorder [Unknown]
  - Dyspnoea [Unknown]
  - Asthma [Unknown]
  - Sleep apnoea syndrome [Unknown]
  - Hyperhidrosis [Recovered/Resolved]
